FAERS Safety Report 12288398 (Version 1)
Quarter: 2016Q2

REPORT INFORMATION
  Report Type: Report from Study
  Country: US (occurrence: US)
  Receive Date: 20160420
  Receipt Date: 20160420
  Transmission Date: 20160815
  Serious: Yes (Other)
  Sender: FDA-Public Use
  Company Number: US-GILEAD-2016-0209417

PATIENT
  Age: 64 Year
  Sex: Female

DRUGS (2)
  1. SOFOSBUVIR [Suspect]
     Active Substance: SOFOSBUVIR
     Indication: HEPATITIS C
     Dosage: 1 DF, QD
     Route: 048
     Dates: start: 20160217
  2. RIBASPHERE [Concomitant]
     Active Substance: RIBAVIRIN

REACTIONS (4)
  - Muscular weakness [Recovering/Resolving]
  - Fatigue [Unknown]
  - Diplegia [Recovering/Resolving]
  - Asthenia [Unknown]
